FAERS Safety Report 25245742 (Version 1)
Quarter: 2025Q2

REPORT INFORMATION
  Report Type: Spontaneous
  Country: CN (occurrence: CN)
  Receive Date: 20250428
  Receipt Date: 20250428
  Transmission Date: 20250717
  Serious: Yes (Other)
  Sender: BAYER HEALTHCARE PHARMACEUTICALS INC.
  Company Number: CN-BAYER-2025A056782

PATIENT
  Age: 56 Year
  Sex: Female
  Weight: 55 kg

DRUGS (1)
  1. KERENDIA [Suspect]
     Active Substance: FINERENONE
     Indication: Diabetic nephropathy
     Dosage: 20 MG, QD
     Route: 048
     Dates: start: 20250120, end: 20250127

REACTIONS (2)
  - Transaminases increased [Recovering/Resolving]
  - Nausea [Recovering/Resolving]

NARRATIVE: CASE EVENT DATE: 20250127
